FAERS Safety Report 19272403 (Version 1)
Quarter: 2021Q2

REPORT INFORMATION
  Report Type: Spontaneous
  Country: US (occurrence: US)
  Receive Date: 20210518
  Receipt Date: 20210518
  Transmission Date: 20210717
  Serious: No
  Sender: FDA-Public Use
  Company Number: US-THERAPEUTICSMD-2021TMD01058

PATIENT
  Age: 57 Year
  Sex: Female
  Weight: 95.24 kg

DRUGS (4)
  1. BIJUVA [Suspect]
     Active Substance: ESTRADIOL\PROGESTERONE
     Indication: MENOPAUSAL SYMPTOMS
     Dosage: 1 CAPSULE, 1X/DAY IN THE MORNING
     Route: 048
     Dates: start: 20210222, end: 20210225
  2. XANAX [Concomitant]
     Active Substance: ALPRAZOLAM
  3. VENLAFAXINE [Concomitant]
     Active Substance: VENLAFAXINE HYDROCHLORIDE
  4. CHELATED MAGNESIUM [Concomitant]
     Dosage: UNK, 1X/DAY AT NIGHT

REACTIONS (10)
  - Disturbance in attention [Recovered/Resolved]
  - Pruritus [Recovered/Resolved]
  - Paraesthesia [Recovered/Resolved]
  - Muscle twitching [Recovered/Resolved]
  - Restless legs syndrome [Recovered/Resolved]
  - Drug ineffective for unapproved indication [Recovered/Resolved]
  - Palpitations [Recovered/Resolved]
  - Panic attack [Recovered/Resolved]
  - Hormone level abnormal [Recovered/Resolved]
  - Crying [Recovered/Resolved]

NARRATIVE: CASE EVENT DATE: 202102
